FAERS Safety Report 19223744 (Version 1)
Quarter: 2021Q2

REPORT INFORMATION
  Report Type: Spontaneous
  Country: US (occurrence: US)
  Receive Date: 20210506
  Receipt Date: 20210506
  Transmission Date: 20210717
  Serious: Yes (Hospitalization, Other)
  Sender: FDA-Public Use
  Company Number: US-ALVOGEN-2021-ALVOGEN-116910

PATIENT
  Age: 47 Year
  Sex: Female

DRUGS (1)
  1. GRALISE [Suspect]
     Active Substance: GABAPENTIN
     Indication: LUMBAR RADICULOPATHY
     Dosage: STRENGTH: 600 MG
     Route: 048

REACTIONS (2)
  - Sepsis [Unknown]
  - Lower limb fracture [Unknown]

NARRATIVE: CASE EVENT DATE: 20210415
